FAERS Safety Report 15736327 (Version 1)
Quarter: 2018Q4

REPORT INFORMATION
  Report Type: Spontaneous
  Country: JP (occurrence: JP)
  Receive Date: 20181218
  Receipt Date: 20181218
  Transmission Date: 20190205
  Serious: Yes (Death, Life-Threatening, Other)
  Sender: FDA-Public Use
  Company Number: PHHY2018JP187499

PATIENT
  Age: 5 Year
  Sex: Female

DRUGS (2)
  1. FLUDARABINE [Suspect]
     Active Substance: FLUDARABINE PHOSPHATE
     Indication: BONE MARROW CONDITIONING REGIMEN
     Route: 065
  2. MELPHALAN. [Suspect]
     Active Substance: MELPHALAN
     Indication: BONE MARROW CONDITIONING REGIMEN
     Route: 065

REACTIONS (8)
  - Cardiomegaly [Unknown]
  - Protein-losing gastroenteropathy [Unknown]
  - Pulmonary congestion [Unknown]
  - Lung disorder [Unknown]
  - Product use in unapproved indication [Unknown]
  - Prerenal failure [Unknown]
  - Respiratory distress [Unknown]
  - Fungal infection [Fatal]
